FAERS Safety Report 8341046-0 (Version None)
Quarter: 2012Q2

REPORT INFORMATION
  Report Type: 
  Country: None (occurrence: None)
  Receive Date: 20120507
  Receipt Date: 20120426
  Transmission Date: 20120825
  Serious: Yes (Other)
  Sender: FDA-Public Use
  Company Number: US-GLAXOSMITHKLINE-A0794457A

PATIENT
  Age: 43 Year
  Sex: Male
  Weight: 137.7 kg

DRUGS (2)
  1. AVANDAMET [Suspect]
     Indication: DIABETES MELLITUS
     Route: 048
     Dates: start: 20060301, end: 20071001
  2. AVANDIA [Suspect]
     Indication: DIABETES MELLITUS
     Route: 048

REACTIONS (3)
  - CARDIAC VALVE DISEASE [None]
  - CARDIAC DISORDER [None]
  - CARDIAC FAILURE CONGESTIVE [None]
